FAERS Safety Report 9744995 (Version 1)
Quarter: 2013Q4

REPORT INFORMATION
  Report Type: Spontaneous
  Country: US (occurrence: US)
  Receive Date: 20131211
  Receipt Date: 20131211
  Transmission Date: 20140711
  Serious: No
  Sender: FDA-Public Use
  Company Number: US-009507513-1312USA004140

PATIENT
  Sex: Female
  Weight: 65.76 kg

DRUGS (1)
  1. NUVARING [Suspect]
     Indication: CONTRACEPTION
     Dosage: STANDARD SCHEDULE; .015/.12
     Route: 067
     Dates: start: 20131116, end: 20131205

REACTIONS (5)
  - Incorrect product storage [Unknown]
  - Poor quality drug administered [Unknown]
  - Inappropriate schedule of drug administration [Unknown]
  - Expired drug administered [Unknown]
  - No adverse event [Unknown]
